FAERS Safety Report 7096965-2 (Version None)
Quarter: 2010Q4

REPORT INFORMATION
  Report Type: 
  Country: None (occurrence: None)
  Receive Date: 20101111
  Receipt Date: 20100329
  Transmission Date: 20110411
  Serious: No
  Sender: FDA-Public Use
  Company Number: US-KINGPHARMUSA00001-K201000386

PATIENT
  Sex: Female

DRUGS (1)
  1. FLECTOR [Suspect]
     Indication: MUSCLE SPASMS
     Dosage: 1 PATCH, SINGLE
     Route: 061
     Dates: start: 20100309, end: 20100309

REACTIONS (1)
  - DEPRESSION [None]
